FAERS Safety Report 23980473 (Version 1)
Quarter: 2024Q2

REPORT INFORMATION
  Report Type: Report from Study
  Country: US (occurrence: US)
  Receive Date: 20240617
  Receipt Date: 20240617
  Transmission Date: 20240716
  Serious: Yes (Other)
  Sender: FDA-Public Use
  Company Number: US-JNJFOC-20240616640

PATIENT
  Age: 50 Year
  Sex: Female

DRUGS (1)
  1. SPRAVATO [Suspect]
     Active Substance: ESKETAMINE
     Indication: Depression
     Dosage: ^56 MG, 12 TOTAL DOSES^
     Dates: start: 20240418, end: 20240605

REACTIONS (2)
  - Cardiac flutter [Unknown]
  - Heart rate decreased [Unknown]
